FAERS Safety Report 14888807 (Version 1)
Quarter: 2018Q2

REPORT INFORMATION
  Report Type: Report from Study
  Country: None (occurrence: CO)
  Receive Date: 20180513
  Receipt Date: 20180513
  Transmission Date: 20180711
  Serious: Yes (Other)
  Sender: FDA-Public Use
  Company Number: CO-ABBVIE-18K-036-2353817-00

PATIENT
  Age: 45 Year
  Sex: Male
  Weight: 52 kg

DRUGS (8)
  1. TRIMEBUTINE [Concomitant]
     Active Substance: TRIMEBUTINE
     Indication: PRODUCT USED FOR UNKNOWN INDICATION
  2. ESOMEPRAZOLE [Concomitant]
     Active Substance: ESOMEPRAZOLE
     Indication: PRODUCT USED FOR UNKNOWN INDICATION
  3. VALPROIC ACID. [Concomitant]
     Active Substance: VALPROIC ACID
     Indication: PRODUCT USED FOR UNKNOWN INDICATION
  4. ACETAMINOPHEN AND CODEINE [Concomitant]
     Active Substance: ACETAMINOPHEN\CODEINE PHOSPHATE
     Indication: PRODUCT USED FOR UNKNOWN INDICATION
  5. METOCLOPRAMIDE. [Concomitant]
     Active Substance: METOCLOPRAMIDE
     Indication: PRODUCT USED FOR UNKNOWN INDICATION
  6. HYDROCODONE [Concomitant]
     Active Substance: HYDROCODONE
     Indication: PRODUCT USED FOR UNKNOWN INDICATION
  7. HUMIRA [Suspect]
     Active Substance: ADALIMUMAB
     Indication: ANKYLOSING SPONDYLITIS
     Route: 058
     Dates: start: 20140509
  8. MELATONINE [Concomitant]
     Active Substance: MELATONIN
     Indication: PRODUCT USED FOR UNKNOWN INDICATION

REACTIONS (5)
  - Feeling hot [Not Recovered/Not Resolved]
  - Disorientation [Not Recovered/Not Resolved]
  - Inflammation [Not Recovered/Not Resolved]
  - Oedema [Not Recovered/Not Resolved]
  - Erythema [Not Recovered/Not Resolved]

NARRATIVE: CASE EVENT DATE: 201709
